FAERS Safety Report 6918019-5 (Version None)
Quarter: 2010Q3

REPORT INFORMATION
  Report Type: 
  Country: None (occurrence: None)
  Receive Date: 20100810
  Receipt Date: 20100419
  Transmission Date: 20110219
  Serious: No
  Sender: FDA-Public Use
  Company Number: US-PFIZER INC-2009271237

PATIENT
  Sex: Female
  Weight: 72 kg

DRUGS (12)
  1. TOVIAZ [Suspect]
     Indication: POLLAKIURIA
     Dosage: 4 MG, 1X/DAY
     Dates: start: 20091202
  2. TOVIAZ [Suspect]
  3. OXYBUTYNIN [Suspect]
     Indication: POLLAKIURIA
     Dosage: 30 MG, UNK
     Dates: start: 20091202
  4. METFORMIN [Concomitant]
     Indication: DIABETES MELLITUS
     Dosage: 500 MG, 2X/DAY
  5. LOVASTATIN [Concomitant]
     Indication: BLOOD CHOLESTEROL ABNORMAL
     Dosage: 120 MG, 1X/DAY
  6. GALENIC /CALCIUM/VITAMIN D/ [Concomitant]
     Dosage: 500 MG, 2X/DAY
  7. VALIUM [Concomitant]
     Indication: INSOMNIA
     Dosage: UNK
  8. OMEGA-3 TRIGLYCERIDES [Concomitant]
     Dosage: UNK
  9. LYCOPENE [Concomitant]
     Dosage: UNK
  10. MULTI-VITAMINS [Concomitant]
     Dosage: UNK
  11. VICODIN [Concomitant]
     Indication: ARTHRITIS
     Dosage: UNK
  12. VICODIN [Concomitant]
     Indication: ARTHRALGIA

REACTIONS (3)
  - DECREASED APPETITE [None]
  - DRUG INEFFECTIVE [None]
  - SOMNOLENCE [None]
